FAERS Safety Report 5015734-8 (Version None)
Quarter: 2006Q2

REPORT INFORMATION
  Report Type: 
  Country: None (occurrence: None)
  Receive Date: 20060526
  Receipt Date: 20060517
  Transmission Date: 20061013
  Serious: Yes (Hospitalization)
  Sender: FDA-Public Use
  Company Number: 225241

PATIENT
  Age: 68 Year

DRUGS (1)
  1. HERCEPTIN [Suspect]

REACTIONS (1)
  - HOSPITALISATION [None]
